FAERS Safety Report 9319390 (Version 1)
Quarter: 2013Q2

REPORT INFORMATION
  Report Type: Report from Study
  Country: UA (occurrence: UA)
  Receive Date: 20130530
  Receipt Date: 20130530
  Transmission Date: 20140414
  Serious: Yes (Hospitalization)
  Sender: FDA-Public Use
  Company Number: UA-TEVA-306251ISR

PATIENT
  Age: 70 Year
  Sex: Female
  Weight: 72.8 kg

DRUGS (10)
  1. TL011 [Suspect]
     Indication: DIFFUSE LARGE B-CELL LYMPHOMA
     Dosage: DOUBLE BLIND: TL011  IV VS. MABTHERA
     Route: 042
     Dates: start: 20110413
  2. MABTHERA [Suspect]
     Indication: DIFFUSE LARGE B-CELL LYMPHOMA
     Dosage: DOUBLE BLIND: TL011 VS. MABTHERA
     Route: 042
     Dates: start: 20110413
  3. DOXORUBICIN [Suspect]
     Dates: start: 20110907
  4. VINCRISTINE [Suspect]
     Dates: start: 20110907
  5. CYCLOPHOSPHAMID [Suspect]
     Dates: start: 20110907
  6. FAMOTIDINUM [Concomitant]
     Indication: PROPHYLAXIS AGAINST GASTROINTESTINAL ULCER
     Dosage: 40 MILLIGRAM DAILY;
     Route: 048
     Dates: start: 20110819, end: 20110822
  7. FAMOTIDINUM [Concomitant]
     Route: 048
     Dates: start: 20110907, end: 20110911
  8. PARACETAMOLUM [Concomitant]
     Indication: PREMEDICATION
     Dosage: 1 GRAM DAILY;
     Route: 048
     Dates: start: 20110907, end: 20110907
  9. DIPHENHYDRAMINUM [Concomitant]
     Indication: PREMEDICATION
     Dosage: .01 GRAM DAILY;
     Route: 042
     Dates: start: 20110907, end: 20110907
  10. OSETRON [Concomitant]
     Indication: PROPHYLAXIS OF NAUSEA AND VOMITING
     Dosage: 8 MILLIGRAM DAILY;
     Route: 042
     Dates: start: 20110907, end: 20110907

REACTIONS (1)
  - Lung infection [Recovered/Resolved]
